FAERS Safety Report 8593953 (Version 2)
Quarter: 2013Q2

REPORT INFORMATION
  Report Type: Report from Study
  Country: DE (occurrence: DE)
  Receive Date: 20120604
  Receipt Date: 20130507
  Transmission Date: 20140414
  Serious: Yes (Hospitalization)
  Sender: FDA-Public Use
  Company Number: DE-INCYTE CORPORATION-2012IN000865

PATIENT
  Sex: 0

DRUGS (9)
  1. INC424 [Suspect]
     Indication: MYELOFIBROSIS
     Dosage: 20 MG, BID
     Route: 048
     Dates: start: 20120512, end: 20120516
  2. LACTULOSE [Suspect]
     Indication: CONSTIPATION
     Dosage: 30 ML, UNK
  3. OMEPRAZOLE [Concomitant]
  4. ASPIRIN [Concomitant]
  5. ZOLPIDEM [Concomitant]
  6. CODEINE [Concomitant]
     Dosage: UNK
     Dates: start: 20120504
  7. OPIPRAMOL [Concomitant]
  8. HYDROCHLOROTHIAZIDE [Concomitant]
  9. BISOPROLOL [Concomitant]

REACTIONS (1)
  - Inguinal hernia, obstructive [Not Recovered/Not Resolved]
